FAERS Safety Report 6582118-0 (Version None)
Quarter: 2010Q1

REPORT INFORMATION
  Report Type: 
  Country: None (occurrence: None)
  Receive Date: 20100212
  Receipt Date: 20100212
  Transmission Date: 20100710
  Serious: Yes (Life-Threatening, Other)
  Sender: FDA-Public Use
  Company Number: None

PATIENT
  Age: 60 Year
  Sex: Female
  Weight: 105.6881 kg

DRUGS (1)
  1. VALIUM [Suspect]
     Dosage: 1 IV
     Route: 042

REACTIONS (7)
  - CONFUSIONAL STATE [None]
  - DISORIENTATION [None]
  - HEADACHE [None]
  - NAUSEA [None]
  - RENAL DISORDER [None]
  - VERTIGO [None]
  - VOMITING [None]
